FAERS Safety Report 9103588 (Version 1)
Quarter: 2013Q1

REPORT INFORMATION
  Report Type: Report from Study
  Country: MW (occurrence: MW)
  Receive Date: 20130218
  Receipt Date: 20130218
  Transmission Date: 20140127
  Serious: Yes (Hospitalization)
  Sender: FDA-Public Use
  Company Number: MW-VIIV HEALTHCARE LIMITED-B0868147A

PATIENT
  Age: 23 None
  Sex: Female
  Weight: 60.1 kg

DRUGS (3)
  1. ZIDOVUDINE [Suspect]
     Indication: HIV INFECTION
     Dosage: 300MG PER DAY
     Route: 048
     Dates: start: 20121219, end: 20130128
  2. FERROUS SULPHATE [Concomitant]
     Route: 048
     Dates: end: 20130128
  3. COTRIMOXAZOLE [Concomitant]
     Route: 048
     Dates: end: 20130128

REACTIONS (1)
  - Foetal death [Recovered/Resolved]
